FAERS Safety Report 19257363 (Version 1)
Quarter: 2021Q2

REPORT INFORMATION
  Report Type: Spontaneous
  Country: US (occurrence: US)
  Receive Date: 20210514
  Receipt Date: 20210514
  Transmission Date: 20210717
  Serious: No
  Sender: FDA-Public Use
  Company Number: US-JNJFOC-20210507192

PATIENT

DRUGS (1)
  1. STELARA [Suspect]
     Active Substance: USTEKINUMAB
     Indication: PRODUCT USED FOR UNKNOWN INDICATION
     Dosage: LAST DOSE 28/APR/2021
     Route: 058

REACTIONS (5)
  - Dizziness [Unknown]
  - Pruritus [Recovering/Resolving]
  - Nausea [Unknown]
  - Rash [Unknown]
  - Headache [Unknown]

NARRATIVE: CASE EVENT DATE: 202105
